FAERS Safety Report 7043983-6 (Version None)
Quarter: 2010Q4

REPORT INFORMATION
  Report Type: 
  Country: None (occurrence: None)
  Receive Date: 20101013
  Receipt Date: 20100122
  Transmission Date: 20110411
  Serious: No
  Sender: FDA-Public Use
  Company Number: US-AMGEN-KDL387626

PATIENT
  Sex: Male

DRUGS (1)
  1. VECTIBIX [Suspect]
     Indication: COLORECTAL CANCER
     Dates: start: 20090801

REACTIONS (7)
  - DERMATITIS ACNEIFORM [None]
  - DRUG INEFFECTIVE [None]
  - DRY SKIN [None]
  - GAIT DISTURBANCE [None]
  - NAIL BED INFECTION [None]
  - PAIN IN EXTREMITY [None]
  - SKIN FISSURES [None]
